FAERS Safety Report 6931605-1 (Version None)
Quarter: 2010Q3

REPORT INFORMATION
  Report Type: 
  Country: None (occurrence: None)
  Receive Date: 20100813
  Receipt Date: 20100505
  Transmission Date: 20110219
  Serious: No
  Sender: FDA-Public Use
  Company Number: 1000013687

PATIENT
  Age: 69 Year
  Sex: Female

DRUGS (10)
  1. SAVELLA [Suspect]
     Indication: FIBROMYALGIA
     Dosage: 100 MG (50 MG, 2 IN 1 D), ORAL
     Route: 048
     Dates: start: 20100426, end: 20100504
  2. JANUVIA [Concomitant]
  3. AMLODIPINE [Concomitant]
  4. METOPROLOL TARTRATE [Concomitant]
  5. ATORVASTATIN [Concomitant]
  6. CRANBERRY PILLS [Concomitant]
  7. JANUVIA [Concomitant]
  8. AMLODIPINE [Concomitant]
  9. METOPROLOL TARTRATE [Concomitant]
  10. ATORVASTATIN [Concomitant]

REACTIONS (7)
  - ABDOMINAL PAIN UPPER [None]
  - ASTHENIA [None]
  - CRYING [None]
  - DROOLING [None]
  - DYSPNOEA [None]
  - HYPERHIDROSIS [None]
  - PRURITUS [None]
